FAERS Safety Report 12243610 (Version 3)
Quarter: 2016Q4

REPORT INFORMATION
  Report Type: Report from Study
  Country: FR (occurrence: FR)
  Receive Date: 20160406
  Receipt Date: 20161116
  Transmission Date: 20170207
  Serious: Yes (Hospitalization)
  Sender: FDA-Public Use
  Company Number: FR-EXELIXIS-XL18416006205

PATIENT
  Age: 23 Year
  Sex: Female
  Weight: 38 kg

DRUGS (5)
  1. LEVOTHYROX [Concomitant]
     Active Substance: LEVOTHYROXINE
     Indication: HYPOTHYROIDISM
  2. IMODIUM [Concomitant]
     Active Substance: LOPERAMIDE HYDROCHLORIDE
     Indication: DIARRHOEA
  3. XL184 [Suspect]
     Active Substance: CABOZANTINIB
     Indication: EWING^S SARCOMA
     Dosage: 60 MG, QD
     Route: 048
     Dates: start: 20150825
  4. TEMESTA [Concomitant]
     Active Substance: LORAZEPAM
     Indication: ANXIETY
  5. XL184 [Suspect]
     Active Substance: CABOZANTINIB
     Indication: PRIMITIVE NEUROECTODERMAL TUMOUR
     Dosage: 40 MG, QD
     Route: 048

REACTIONS (1)
  - Pneumothorax [Recovered/Resolved]

NARRATIVE: CASE EVENT DATE: 20160209
